FAERS Safety Report 7562697-7 (Version None)
Quarter: 2011Q2

REPORT INFORMATION
  Report Type: 
  Country: None (occurrence: None)
  Receive Date: 20110622
  Receipt Date: 20110616
  Transmission Date: 20111010
  Serious: Yes (Death)
  Sender: FDA-Public Use
  Company Number: GB-PFIZER INC-2011133158

PATIENT
  Age: 80 Year
  Sex: Male

DRUGS (3)
  1. PHENYTOIN [Suspect]
     Indication: STATUS EPILEPTICUS
  2. KEPPRA [Suspect]
     Indication: STATUS EPILEPTICUS
  3. VALPROATE SODIUM [Suspect]
     Indication: STATUS EPILEPTICUS

REACTIONS (1)
  - STATUS EPILEPTICUS [None]
